FAERS Safety Report 15492025 (Version 1)
Quarter: 2018Q4

REPORT INFORMATION
  Report Type: Spontaneous
  Country: US (occurrence: US)
  Receive Date: 20181011
  Receipt Date: 20181011
  Transmission Date: 20190205
  Serious: Yes (Other)
  Sender: FDA-Public Use
  Company Number: None

PATIENT
  Age: 86 Year
  Sex: Male
  Weight: 57.6 kg

DRUGS (11)
  1. ALFUZOSIN [Concomitant]
     Active Substance: ALFUZOSIN
  2. BISACODYL. [Concomitant]
     Active Substance: BISACODYL
  3. WARFARIN [Concomitant]
     Active Substance: WARFARIN
  4. MEMANTINE. [Suspect]
     Active Substance: MEMANTINE
     Indication: DEMENTIA
     Route: 048
     Dates: start: 20130830, end: 20180723
  5. CHOLECALCIFEROL [Concomitant]
     Active Substance: CHOLECALCIFEROL
  6. VITAMIN B12 [Concomitant]
     Active Substance: CYANOCOBALAMIN
  7. ACETAMINOPHEN. [Concomitant]
     Active Substance: ACETAMINOPHEN
  8. LISINOPRIL. [Concomitant]
     Active Substance: LISINOPRIL
  9. DOCUSATE [Concomitant]
     Active Substance: DOCUSATE
  10. MIRALAX [Concomitant]
     Active Substance: POLYETHYLENE GLYCOL 3350
  11. SENNA [Concomitant]
     Active Substance: SENNA LEAF\SENNOSIDES\SENNOSIDES A AND B

REACTIONS (4)
  - Bradycardia [None]
  - Dyspnoea [None]
  - Chest pain [None]
  - Sinus arrest [None]

NARRATIVE: CASE EVENT DATE: 20180723
